FAERS Safety Report 9834238 (Version 1)
Quarter: 2014Q1

REPORT INFORMATION
  Report Type: Spontaneous
  Country: US (occurrence: US)
  Receive Date: 20140122
  Receipt Date: 20140122
  Transmission Date: 20141002
  Serious: Yes (Other)
  Sender: FDA-Public Use
  Company Number: US-BRISTOL-MYERS SQUIBB COMPANY-20053435

PATIENT
  Sex: 0

DRUGS (1)
  1. ELIQUIS [Suspect]
     Dosage: LAST DOSE ON 16-JAN-2014

REACTIONS (1)
  - Catheterisation cardiac [Unknown]
